FAERS Safety Report 13934716 (Version 3)
Quarter: 2018Q2

REPORT INFORMATION
  Report Type: Report from Study
  Country: US (occurrence: US)
  Receive Date: 20170905
  Receipt Date: 20180517
  Transmission Date: 20180711
  Serious: Yes (Hospitalization)
  Sender: FDA-Public Use
  Company Number: PHEH2017US028428

PATIENT
  Age: 71 Year
  Sex: Female

DRUGS (1)
  1. GILENYA [Suspect]
     Active Substance: FINGOLIMOD HYDROCHLORIDE
     Indication: MULTIPLE SCLEROSIS
     Dosage: 0.5 MG, QD
     Route: 048
     Dates: start: 20170828

REACTIONS (6)
  - Stress [Unknown]
  - Pyrexia [Unknown]
  - Pneumonia [Not Recovered/Not Resolved]
  - Bronchitis [Unknown]
  - Fatigue [Unknown]
  - Cough [Unknown]

NARRATIVE: CASE EVENT DATE: 20180502
